FAERS Safety Report 10242042 (Version 1)
Quarter: 2014Q2

REPORT INFORMATION
  Report Type: Spontaneous
  Country: FR (occurrence: FR)
  Receive Date: 20140617
  Receipt Date: 20140617
  Transmission Date: 20141212
  Serious: Yes (Other)
  Sender: FDA-Public Use
  Company Number: PHHY2014FR070974

PATIENT
  Sex: 0

DRUGS (5)
  1. RIFAMPICIN [Suspect]
     Indication: TUBERCULOSIS
  2. BORTEZOMIB [Interacting]
     Indication: PLASMA CELL MYELOMA
  3. DEXAMETHASONE [Concomitant]
     Indication: PLASMA CELL MYELOMA
  4. PEGYLATED LIPOSOMAL DOXORUBICIN HYDROCHLORIDE [Concomitant]
     Indication: PLASMA CELL MYELOMA
  5. ISONIAZID [Concomitant]
     Indication: TUBERCULOSIS

REACTIONS (2)
  - Monoclonal gammopathy [Recovering/Resolving]
  - Drug interaction [Unknown]
